FAERS Safety Report 4941738-7 (Version None)
Quarter: 2006Q1

REPORT INFORMATION
  Report Type: 
  Country: None (occurrence: None)
  Receive Date: 20060308
  Receipt Date: 20060224
  Transmission Date: 20060701
  Serious: Yes (Other)
  Sender: FDA-Public Use
  Company Number: 2006021964

PATIENT
  Age: 54 Year
  Sex: Female
  Weight: 72.5755 kg

DRUGS (1)
  1. LIPITOR [Suspect]
     Indication: BLOOD CHOLESTEROL INCREASED
     Dosage: (20 MG)
     Dates: end: 20060209

REACTIONS (11)
  - EAR PAIN [None]
  - MALOCCLUSION [None]
  - MULTIPLE SCLEROSIS [None]
  - NEURALGIA [None]
  - PAIN IN JAW [None]
  - PARALYSIS [None]
  - SINUS HEADACHE [None]
  - SLEEP DISORDER DUE TO GENERAL MEDICAL CONDITION, INSOMNIA TYPE [None]
  - SPEECH DISORDER [None]
  - SWOLLEN TONGUE [None]
  - TOOTHACHE [None]
